FAERS Safety Report 8710189 (Version 2)
Quarter: 2012Q4

REPORT INFORMATION
  Report Type: 
  Country: US (occurrence: US)
  Receive Date: 20120806
  Receipt Date: 20120919
  Transmission Date: 20130627
  Serious: No
  Sender: FDA-Public Use
  Company Number: US-009507513-1207USA009053

PATIENT
  Age: 67 None
  Sex: Female

DRUGS (3)
  1. JANUVIA [Suspect]
     Indication: DIABETES MELLITUS
     Dosage: 100 mg, qd
     Route: 048
     Dates: start: 201111, end: 2012
  2. JANUVIA [Suspect]
     Dosage: 100 mg, qd
     Route: 048
     Dates: start: 20120716
  3. METFORMIN [Concomitant]
     Indication: DIABETES MELLITUS
     Dosage: 500 mg, bid
     Route: 048

REACTIONS (4)
  - Tongue discolouration [Not Recovered/Not Resolved]
  - Constipation [Recovering/Resolving]
  - Nausea [Not Recovered/Not Resolved]
  - Paraesthesia [Not Recovered/Not Resolved]
